FAERS Safety Report 11532776 (Version 1)
Quarter: 2015Q3

REPORT INFORMATION
  Report Type: Spontaneous
  Country: US (occurrence: US)
  Receive Date: 20150903
  Receipt Date: 20150903
  Transmission Date: 20151125
  Serious: No
  Sender: FDA-Public Use
  Company Number: US-ELI_LILLY_AND_COMPANY-US201012003673

PATIENT
  Sex: Female
  Weight: 45.35 kg

DRUGS (1)
  1. HUMALOG [Suspect]
     Active Substance: INSULIN LISPRO
     Indication: TYPE 2 DIABETES MELLITUS
     Dosage: UNK, AS NEEDED
     Dates: start: 201010

REACTIONS (6)
  - Underdose [Unknown]
  - Injection site pain [Unknown]
  - Blood glucose increased [Unknown]
  - Drug dose omission [Unknown]
  - Contusion [Unknown]
  - Anxiety [Unknown]
